FAERS Safety Report 7606048-8 (Version None)
Quarter: 2011Q3

REPORT INFORMATION
  Report Type: 
  Country: None (occurrence: None)
  Receive Date: 20110713
  Receipt Date: 20110711
  Transmission Date: 20111222
  Serious: Yes (Life-Threatening)
  Sender: FDA-Public Use
  Company Number: PHHO2011ES00772

PATIENT
  Sex: Male
  Weight: 86.5 kg

DRUGS (11)
  1. BLINDED NO TREATMENT RECEIVED [Suspect]
     Indication: CARDIAC FAILURE
     Dosage: NO TREATMENT
  2. BISOPROLOL FUMARATE [Concomitant]
     Indication: CARDIAC FAILURE
     Dosage: 5 MG, DAILY
     Dates: start: 20100821
  3. ISOSORBIDE MONONITRATE [Concomitant]
     Indication: CARDIAC FAILURE
     Dosage: 40 MG, TID
     Dates: start: 20100505
  4. FUROSEMIDE [Concomitant]
     Dosage: 80-40-0, MG
     Dates: start: 20110108
  5. ENALAPRIL MALEATE [Suspect]
     Indication: CARDIAC FAILURE
     Dosage: 10 MG, BID
     Route: 048
     Dates: start: 20101125, end: 20110109
  6. ALISKIREN [Suspect]
     Indication: CARDIAC FAILURE
     Dosage: 150 MG, DAILY
     Route: 048
     Dates: start: 20110105, end: 20110109
  7. NITROGLYCERIN [Concomitant]
     Indication: CARDIAC FAILURE
     Dosage: 10 UNK, UNK
     Route: 062
     Dates: start: 20100821
  8. CONTRAST MEDIA [Suspect]
  9. FUROSEMIDE [Concomitant]
     Indication: CARDIAC FAILURE
     Dosage: 80-40-0, MG
     Dates: start: 20050101, end: 20110108
  10. BLINDED ALISKIREN [Suspect]
     Indication: CARDIAC FAILURE
     Dosage: NO TREATMENT
  11. ENALAPRIL MALEATE [Suspect]
     Indication: CARDIAC FAILURE
     Dosage: NO TREATMENT

REACTIONS (5)
  - ABDOMINAL PAIN [None]
  - OLIGURIA [None]
  - RENAL IMPAIRMENT [None]
  - RENAL FAILURE CHRONIC [None]
  - CONDITION AGGRAVATED [None]
